FAERS Safety Report 9450942 (Version 2)
Quarter: 2013Q3

REPORT INFORMATION
  Report Type: Spontaneous
  Country: US (occurrence: US)
  Receive Date: 20130809
  Receipt Date: 20130929
  Transmission Date: 20140515
  Serious: No
  Sender: FDA-Public Use
  Company Number: US-009507513-1308USA003577

PATIENT
  Sex: Female

DRUGS (1)
  1. MIRALAX [Suspect]
     Indication: CONSTIPATION
     Dosage: UNK, UNKNOWN
     Route: 048

REACTIONS (4)
  - Gastric disorder [Not Recovered/Not Resolved]
  - Drug ineffective [Unknown]
  - Product physical issue [Unknown]
  - Product solubility abnormal [Unknown]
